FAERS Safety Report 4892415-2 (Version None)
Quarter: 2006Q1

REPORT INFORMATION
  Report Type: 
  Country: None (occurrence: None)
  Receive Date: 20060124
  Receipt Date: 20060111
  Transmission Date: 20060701
  Serious: Yes (Hospitalization, Other)
  Sender: FDA-Public Use
  Company Number: 2006001581

PATIENT
  Age: 23 Year
  Sex: Female
  Weight: 39 kg

DRUGS (8)
  1. VFEND [Suspect]
     Indication: PNEUMONIA ASPERGILLUS
     Dosage: 400 MG, ORAL
     Route: 048
     Dates: start: 20050501, end: 20051201
  2. SANDIMMUNE [Concomitant]
  3. PANTOPRAZOLE SODIUM [Concomitant]
  4. AUGMENTIN '125' [Concomitant]
  5. COTRIM [Concomitant]
  6. LEVOFLOXACIN [Concomitant]
  7. AMPHO-MORONAL (AMPHOTERICIN B) [Concomitant]
  8. CHEMOTHERAPY NOS (CHEMOTHERAPY NOS) [Concomitant]

REACTIONS (11)
  - ACUTE RESPIRATORY DISTRESS SYNDROME [None]
  - CHOLECYSTITIS [None]
  - CHOLELITHIASIS [None]
  - EROSIVE DUODENITIS [None]
  - FACTOR XIII DEFICIENCY [None]
  - FIBROSIS [None]
  - HAEMATEMESIS [None]
  - HAEMORRHAGE [None]
  - HEPATOCELLULAR DAMAGE [None]
  - POST PROCEDURAL HAEMORRHAGE [None]
  - STEM CELL TRANSPLANT [None]
